FAERS Safety Report 8303976-5 (Version None)
Quarter: 2012Q2

REPORT INFORMATION
  Report Type: 
  Country: None (occurrence: None)
  Receive Date: 20120423
  Receipt Date: 20120328
  Transmission Date: 20120825
  Serious: Yes (Other)
  Sender: FDA-Public Use
  Company Number: IT-ASTELLAS-2012US004063

PATIENT

DRUGS (7)
  1. TARCEVA [Suspect]
     Dosage: UNK
     Route: 048
     Dates: start: 20080619, end: 20080818
  2. TARCEVA [Suspect]
     Indication: PRODUCT USED FOR UNKNOWN INDICATION
     Dosage: UNK
     Route: 048
     Dates: start: 20070329, end: 20070412
  3. TARCEVA [Suspect]
     Dosage: UNK
     Route: 048
     Dates: end: 20090720
  4. TARCEVA [Suspect]
     Dosage: UNK
     Route: 048
     Dates: start: 20071016
  5. TARCEVA [Suspect]
     Dosage: UNK
     Route: 048
     Dates: start: 20081028, end: 20081209
  6. TARCEVA [Suspect]
     Dosage: UNK
     Route: 048
     Dates: start: 20071025
  7. TARCEVA [Suspect]
     Dosage: UNK
     Route: 048
     Dates: start: 20080122, end: 20080226

REACTIONS (4)
  - RASH [None]
  - DERMATITIS ACNEIFORM [None]
  - DUODENAL ULCER [None]
  - HAEMORRHAGE [None]
